FAERS Safety Report 8974931 (Version 4)
Quarter: 2013Q1

REPORT INFORMATION
  Report Type: Report from Study
  Country: CN (occurrence: CN)
  Receive Date: 20121220
  Receipt Date: 20130125
  Transmission Date: 20140127
  Serious: Yes (Life-Threatening, Hospitalization, Other)
  Sender: FDA-Public Use
  Company Number: CN-AMGEN-CHNCT2012080939

PATIENT
  Age: 55 Year
  Sex: Male
  Weight: 54 kg

DRUGS (8)
  1. PANITUMUMAB [Suspect]
     Indication: COLORECTAL CANCER METASTATIC
     Dosage: OTHER
     Dates: start: 20121030, end: 20121113
  2. PANITUMUMAB [Suspect]
  3. LEVOFLOXACIN [Concomitant]
     Indication: INFECTION
     Dosage: UNK
     Route: 042
     Dates: start: 20121031, end: 20121108
  4. OMEPRAZOLE SODIUM [Concomitant]
     Dosage: UNK
     Route: 042
     Dates: start: 20121031, end: 20121120
  5. MAGNESIUM ISOGLYCYRRHIZINATE [Concomitant]
     Dosage: UNK
     Route: 042
     Dates: start: 20121031, end: 20121108
  6. AMINO ACIDS NOS W/POLYPEPTIDE [Concomitant]
     Dosage: UNK
     Route: 042
     Dates: start: 20121031, end: 20121108
  7. CIMETIDINE [Concomitant]
     Dosage: UNK
     Route: 042
     Dates: start: 20121114, end: 20121120
  8. HERBAL EXTRACT NOS [Concomitant]
     Indication: JAUNDICE
     Route: 048
     Dates: start: 20121205, end: 20121214

REACTIONS (3)
  - Jaundice hepatocellular [Recovered/Resolved]
  - Bone marrow failure [Recovered/Resolved]
  - Disseminated intravascular coagulation [Recovered/Resolved]
